FAERS Safety Report 5000792-7 (Version None)
Quarter: 2006Q2

REPORT INFORMATION
  Report Type: 
  Country: None (occurrence: None)
  Receive Date: 20060512
  Receipt Date: 20060314
  Transmission Date: 20061013
  Serious: Yes (Death, Hospitalization)
  Sender: FDA-Public Use
  Company Number: US-MERCK-0603USA02333

PATIENT
  Age: 60 Year
  Sex: Female
  Weight: 75 kg

DRUGS (5)
  1. VENTILAN (ALBUTEROL) [Concomitant]
     Route: 055
  2. VIOXX [Suspect]
     Indication: ARTHRITIS
     Route: 048
  3. COMBIVENT [Concomitant]
     Route: 055
  4. ZESTRIL [Concomitant]
     Route: 048
  5. FLOVENT [Concomitant]
     Route: 055

REACTIONS (6)
  - ARTHRALGIA [None]
  - DEATH [None]
  - EMPHYSEMA [None]
  - ENTEROBACTER BACTERAEMIA [None]
  - INJURY [None]
  - ISCHAEMIC CEREBRAL INFARCTION [None]
